FAERS Safety Report 6065955-0 (Version None)
Quarter: 2009Q1

REPORT INFORMATION
  Report Type: 
  Country: None (occurrence: None)
  Receive Date: 20090121
  Receipt Date: 20080403
  Transmission Date: 20090719
  Serious: Yes (Other)
  Sender: FDA-Public Use
  Company Number: HQWYE072629JAN03

PATIENT
  Age: 49 Year
  Sex: Female

DRUGS (1)
  1. PREMPRO [Suspect]
     Dosage: O.625MG/UNSPECIFIED, ORAL
     Route: 048
     Dates: start: 19990201, end: 20020101

REACTIONS (2)
  - MYOCARDIAL INFARCTION [None]
  - THROMBOSIS [None]
